FAERS Safety Report 4615117-6 (Version None)
Quarter: 2005Q1

REPORT INFORMATION
  Report Type: 
  Country: None (occurrence: None)
  Receive Date: 20050315
  Receipt Date: 20050309
  Transmission Date: 20050727
  Serious: Yes (Death, Life-Threatening, Hospitalization)
  Sender: FDA-Public Use
  Company Number: K200500342

PATIENT
  Age: 73 Year
  Sex: Male

DRUGS (4)
  1. ALTACE [Suspect]
     Dosage: 12.5 MG, QD, ORAL
     Route: 048
     Dates: end: 20040416
  2. ZOLOFT [Concomitant]
  3. OMEPRAZOL ^ACYFABRIK^ (OMEPRAZOLE) [Concomitant]
  4. CALCIUM (CALCIUM) [Concomitant]

REACTIONS (3)
  - MYOCARDIAL INFARCTION [None]
  - POST PROCEDURAL COMPLICATION [None]
  - RENAL FAILURE ACUTE [None]
